FAERS Safety Report 10053395 (Version 3)
Quarter: 2014Q3

REPORT INFORMATION
  Report Type: Spontaneous
  Country: US (occurrence: US)
  Receive Date: 20140402
  Receipt Date: 20140723
  Transmission Date: 20150326
  Serious: No
  Sender: FDA-Public Use
  Company Number: US-PFIZER INC-2014088643

PATIENT
  Age: 75 Year
  Sex: Female

DRUGS (1)
  1. XALKORI [Suspect]
     Active Substance: CRIZOTINIB
     Indication: METASTASES TO LUNG
     Dosage: 250 MG, 2X/DAY
     Route: 048
     Dates: start: 20130917, end: 20140326

REACTIONS (4)
  - Dehydration [Recovering/Resolving]
  - Memory impairment [Unknown]
  - Off label use [Unknown]
  - Confusional state [Unknown]
